FAERS Safety Report 13752196 (Version 2)
Quarter: 2018Q2

REPORT INFORMATION
  Report Type: Spontaneous
  Country: US (occurrence: US)
  Receive Date: 20170713
  Receipt Date: 20180411
  Transmission Date: 20180711
  Serious: No
  Sender: FDA-Public Use
  Company Number: US-JAZZ-2017-US-006003

PATIENT
  Sex: Female

DRUGS (2)
  1. XYREM [Suspect]
     Active Substance: SODIUM OXYBATE
     Indication: NARCOLEPSY
     Dosage: 2.25G, BID
     Route: 048
     Dates: start: 201703, end: 201704
  2. XYREM [Suspect]
     Active Substance: SODIUM OXYBATE
     Indication: CATAPLEXY
     Dosage: 2.75G, BID
     Route: 048
     Dates: start: 201704, end: 2017

REACTIONS (1)
  - Exposure during pregnancy [Unknown]
